FAERS Safety Report 4719279-1 (Version None)
Quarter: 2005Q3

REPORT INFORMATION
  Report Type: 
  Country: None (occurrence: None)
  Receive Date: 20050719
  Receipt Date: 20050708
  Transmission Date: 20060218
  Serious: Yes (Death)
  Sender: FDA-Public Use
  Company Number: HQWYE108811JUL05

PATIENT
  Sex: Female

DRUGS (1)
  1. PANTOLOC (PANTOPRAZOLE, TABLET, DELAYED RELEASE) [Suspect]
     Indication: ABDOMINAL PAIN UPPER
     Dosage: 40 MG 1X PER 1 DAY; ORAL
     Route: 048
     Dates: start: 20050609

REACTIONS (1)
  - DEATH [None]
